FAERS Safety Report 10157938 (Version 5)
Quarter: 2014Q4

REPORT INFORMATION
  Report Type: Spontaneous
  Country: CN (occurrence: CN)
  Receive Date: 20140507
  Receipt Date: 20141022
  Transmission Date: 20150528
  Serious: Yes (Other)
  Sender: FDA-Public Use
  Company Number: PHHY2014CN054041

PATIENT
  Age: 60 Year
  Sex: Female

DRUGS (1)
  1. ACLASTA [Suspect]
     Active Substance: ZOLEDRONIC ACID
     Indication: PRODUCT USED FOR UNKNOWN INDICATION
     Dosage: 5 MG, 1 IN EVERY 365 DAYS
     Route: 042
     Dates: start: 20140201

REACTIONS (11)
  - Blindness transient [Unknown]
  - Eye disorder [Unknown]
  - Uveitis [Unknown]
  - Vision blurred [Not Recovered/Not Resolved]
  - Vomiting [Unknown]
  - Vertigo [Unknown]
  - Dizziness [Not Recovered/Not Resolved]
  - Nausea [Unknown]
  - Anxiety [Unknown]
  - Visual acuity reduced [Not Recovered/Not Resolved]
  - Pyrexia [Unknown]

NARRATIVE: CASE EVENT DATE: 20140515
